FAERS Safety Report 9355455 (Version 2)
Quarter: 2013Q3

REPORT INFORMATION
  Report Type: Spontaneous
  Country: FR (occurrence: FR)
  Receive Date: 20130619
  Receipt Date: 20130702
  Transmission Date: 20140515
  Serious: Yes (Hospitalization)
  Sender: FDA-Public Use
  Company Number: FR-PFIZER INC-2013182421

PATIENT
  Age: 67 Year
  Sex: Female

DRUGS (10)
  1. OXALIPLATIN [Suspect]
     Indication: GASTRIC CANCER
     Dosage: 175 MG PER COURSE
     Route: 042
     Dates: start: 20130430, end: 20130430
  2. ZOPHREN [Suspect]
     Indication: PREMEDICATION
     Dosage: 8 MG, UNK
     Route: 048
     Dates: start: 20130430, end: 20130501
  3. EPIRUBICIN HYDROCHLORIDE [Concomitant]
     Dosage: 67 MG PER COURSE
     Route: 042
     Dates: start: 20130430, end: 20130430
  4. CRESTOR [Concomitant]
     Dosage: 5 MG, 1X/DAY
     Route: 048
  5. PLAVIX [Concomitant]
     Dosage: 75 MG, 1X/DAY
     Route: 048
  6. DOLIPRANE [Concomitant]
     Dosage: 1 G, 1X/DAY1-2TABLETS DAILY AS REQUIRED
     Route: 048
  7. ZOLPIDEM [Concomitant]
     Dosage: 1 DF, 1X/DAY
  8. METHYLPREDNISOLONE [Concomitant]
     Dosage: 40 MG, 1X/DAY
     Route: 042
     Dates: start: 20130430, end: 20130430
  9. EZETROL [Concomitant]
     Dosage: 10 MG, 1X/DAY
     Route: 048
  10. EMEND [Concomitant]
     Dosage: 125 MG, 1X/DAY
     Route: 048
     Dates: start: 20130430, end: 20130502

REACTIONS (6)
  - Dyskinesia [Recovered/Resolved]
  - Chest discomfort [Recovered/Resolved]
  - Dysphagia [Recovered/Resolved]
  - Pain in extremity [Recovered/Resolved]
  - Myalgia [Recovered/Resolved]
  - Paraesthesia [Recovered/Resolved]
